FAERS Safety Report 5061895-4 (Version None)
Quarter: 2006Q3

REPORT INFORMATION
  Report Type: 
  Country: None (occurrence: None)
  Receive Date: 20060726
  Receipt Date: 20060524
  Transmission Date: 20061208
  Serious: Yes (Hospitalization, Other)
  Sender: FDA-Public Use
  Company Number: PHEH2006US06904

PATIENT
  Age: 14 Year
  Sex: Female

DRUGS (6)
  1. LORTAB [Concomitant]
     Indication: PAIN
     Dosage: 1 TAB, Q6H PRN
     Dates: start: 20051201
  2. EXJADE [Suspect]
     Indication: SICKLE CELL ANAEMIA
     Dosage: 20 MG, QD
     Route: 048
     Dates: start: 20060126, end: 20060515
  3. ADVAIR DISKUS 100/50 [Concomitant]
     Indication: ASTHMA
     Dosage: 1 PUFF (450/20), BID
     Dates: start: 20020802
  4. SINGULAIR [Concomitant]
     Indication: ASTHMA
     Dosage: 5 MG, QHS
     Dates: start: 20000114
  5. ALBUTEROL SPIROS [Concomitant]
  6. FOLIC ACID [Concomitant]
     Indication: SICKLE CELL ANAEMIA
     Dosage: 1 MG, QD
     Dates: start: 20000114

REACTIONS (12)
  - ALANINE AMINOTRANSFERASE INCREASED [None]
  - ASPARTATE AMINOTRANSFERASE INCREASED [None]
  - BLOOD ALKALINE PHOSPHATASE INCREASED [None]
  - BLOOD BILIRUBIN INCREASED [None]
  - BLOOD LACTATE DEHYDROGENASE INCREASED [None]
  - CHEST PAIN [None]
  - CYTOMEGALOVIRUS ANTIBODY POSITIVE [None]
  - GAMMA-GLUTAMYLTRANSFERASE INCREASED [None]
  - HEPATITIS [None]
  - LIVER FUNCTION TEST ABNORMAL [None]
  - PYREXIA [None]
  - ULTRASOUND LIVER ABNORMAL [None]
